FAERS Safety Report 15865883 (Version 4)
Quarter: 2019Q2

REPORT INFORMATION
  Report Type: Spontaneous
  Country: JP (occurrence: JP)
  Receive Date: 20190125
  Receipt Date: 20190607
  Transmission Date: 20190711
  Serious: Yes (Death, Hospitalization, Other)
  Sender: FDA-Public Use
  Company Number: JP-ASTRAZENECA-2019SE14991

PATIENT
  Age: 30155 Day
  Sex: Male
  Weight: 51 kg

DRUGS (1)
  1. TAGRISSO [Suspect]
     Active Substance: OSIMERTINIB
     Indication: NON-SMALL CELL LUNG CANCER
     Route: 048
     Dates: start: 20190107, end: 20190117

REACTIONS (3)
  - Metastases to lung [Unknown]
  - Malignant neoplasm progression [Unknown]
  - Pulmonary toxicity [Fatal]

NARRATIVE: CASE EVENT DATE: 20190116
